FAERS Safety Report 17301035 (Version 3)
Quarter: 2023Q2

REPORT INFORMATION
  Report Type: Spontaneous
  Country: US (occurrence: US)
  Receive Date: 20200122
  Receipt Date: 20230530
  Transmission Date: 20230722
  Serious: Yes (Life-Threatening, Hospitalization, Other)
  Sender: FDA-Public Use
  Company Number: US-MLMSERVICE-20200103-2110446-1

PATIENT
  Age: 58 Year
  Sex: Female

DRUGS (5)
  1. FENTANYL [Suspect]
     Active Substance: FENTANYL
     Indication: Sedation
     Route: 065
  2. FENTANYL CITRATE [Suspect]
     Active Substance: FENTANYL CITRATE
     Indication: Sedation
     Dosage: NEBULIZED
     Route: 065
  3. MIDAZOLAM [Suspect]
     Active Substance: MIDAZOLAM
     Indication: Sedation
     Route: 065
  4. DIPHENHYDRAMINE HYDROCHLORIDE [Suspect]
     Active Substance: DIPHENHYDRAMINE HYDROCHLORIDE
     Indication: Sedation
     Route: 065
  5. LIDOCAINE [Concomitant]
     Active Substance: LIDOCAINE
     Route: 045

REACTIONS (7)
  - Shock [Recovered/Resolved]
  - Condition aggravated [Recovered/Resolved]
  - Pulmonary oedema [Recovered/Resolved]
  - Generalised tonic-clonic seizure [Recovered/Resolved]
  - Respiratory failure [Recovered/Resolved]
  - Pulseless electrical activity [Recovered/Resolved]
  - Ventricular hypokinesia [Recovered/Resolved]
